FAERS Safety Report 25150508 (Version 2)
Quarter: 2025Q2

REPORT INFORMATION
  Report Type: Spontaneous
  Country: US (occurrence: US)
  Receive Date: 20250402
  Receipt Date: 20250425
  Transmission Date: 20250717
  Serious: Yes (Hospitalization, Other)
  Sender: BRISTOL-MYERS SQUIBB COMPANY
  Company Number: US-BRISTOL-MYERS SQUIBB COMPANY-2025-043568

PATIENT
  Age: 88 Year
  Sex: Female
  Weight: 79.83 kg

DRUGS (1)
  1. POMALYST [Suspect]
     Active Substance: POMALIDOMIDE
     Indication: Plasma cell myeloma
     Dosage: 3 WKS ON/1 WK OFF; 3 WEEKS ON, 1 WEEK OFF
     Route: 048
     Dates: start: 20241206

REACTIONS (9)
  - Rash [Recovered/Resolved]
  - Upper respiratory tract infection [Recovered/Resolved]
  - Hypercalcaemia [Recovered/Resolved]
  - Tremor [Not Recovered/Not Resolved]
  - Sinus congestion [Recovered/Resolved]
  - Seasonal allergy [Unknown]
  - Hypomagnesaemia [Recovered/Resolved]
  - Acute kidney injury [Recovered/Resolved]
  - Oesophageal spasm [Recovered/Resolved]
